FAERS Safety Report 19242305 (Version 2)
Quarter: 2021Q2

REPORT INFORMATION
  Report Type: Spontaneous
  Country: US (occurrence: US)
  Receive Date: 20210510
  Receipt Date: 20210618
  Transmission Date: 20210717
  Serious: Yes (Hospitalization)
  Sender: FDA-Public Use
  Company Number: US-B.I. PHARMACEUTICALS,INC./RIDGEFIELD-2021-BI-101803

PATIENT
  Sex: Female

DRUGS (1)
  1. SPIRIVA RESPIMAT [Suspect]
     Active Substance: TIOTROPIUM BROMIDE
     Indication: PRODUCT USED FOR UNKNOWN INDICATION
     Dosage: INHALATION SPRAY;?SPIRIVA RESPIM 4.0 ML 2.5 MCG 60ACT INHAL
     Route: 065
     Dates: start: 202103

REACTIONS (5)
  - Product complaint [Unknown]
  - Product preparation error [Unknown]
  - Ulcer [Unknown]
  - Incorrect route of product administration [Unknown]
  - Product delivery mechanism issue [Unknown]
